FAERS Safety Report 7177090-9 (Version None)
Quarter: 2010Q4

REPORT INFORMATION
  Report Type: 
  Country: None (occurrence: None)
  Receive Date: 20101220
  Receipt Date: 20101207
  Transmission Date: 20110411
  Serious: Yes (Other)
  Sender: FDA-Public Use
  Company Number: AR-AMGEN-ARGSP2010009363

PATIENT

DRUGS (1)
  1. ENBREL [Suspect]
     Dosage: UNK
     Dates: end: 20101128

REACTIONS (4)
  - DIZZINESS [None]
  - HYPERSENSITIVITY [None]
  - PYREXIA [None]
  - SURGERY [None]
